FAERS Safety Report 11811950 (Version 1)
Quarter: 2015Q4

REPORT INFORMATION
  Report Type: Report from Study
  Country: US (occurrence: US)
  Receive Date: 20151208
  Receipt Date: 20151208
  Transmission Date: 20160305
  Serious: Yes (Other)
  Sender: FDA-Public Use
  Company Number: PHEH2015US025325

PATIENT
  Age: 75 Year
  Sex: Female

DRUGS (1)
  1. GLEEVEC [Suspect]
     Active Substance: IMATINIB MESYLATE
     Indication: PRODUCT USED FOR UNKNOWN INDICATION
     Route: 065

REACTIONS (5)
  - Upper limb fracture [Unknown]
  - Fall [Unknown]
  - Foot fracture [Unknown]
  - Hip fracture [Unknown]
  - Joint dislocation [Unknown]

NARRATIVE: CASE EVENT DATE: 20150921
